FAERS Safety Report 9283218 (Version 1)
Quarter: 2013Q2

REPORT INFORMATION
  Report Type: Spontaneous
  Country: US (occurrence: US)
  Receive Date: 20130510
  Receipt Date: 20130510
  Transmission Date: 20140414
  Serious: No
  Sender: FDA-Public Use
  Company Number: US-GLAXOSMITHKLINE-A0988820A

PATIENT
  Age: 52 Year
  Sex: Female
  Weight: 118.2 kg

DRUGS (14)
  1. TYKERB [Suspect]
     Indication: PRODUCT USED FOR UNKNOWN INDICATION
     Dosage: 1250MG PER DAY
     Route: 048
  2. ACTOS [Concomitant]
     Route: 065
  3. LISINOPRIL [Concomitant]
     Route: 065
  4. HCTZ/ TRIAM [Concomitant]
     Route: 065
  5. CLARITIN [Concomitant]
     Route: 065
  6. TAGAMET [Concomitant]
     Route: 065
  7. MULTIVITAMIN [Concomitant]
     Route: 065
  8. VITAMIN D [Concomitant]
     Route: 065
  9. TYLENOL PM EXTRA STRENGTH [Concomitant]
     Route: 065
  10. POTASSIUM CHLORIDE [Concomitant]
     Route: 065
  11. NEUPOGEN [Concomitant]
     Route: 065
  12. HERCEPTIN [Concomitant]
     Route: 065
  13. IMODIUM A-D [Concomitant]
     Route: 065
  14. XELODA [Concomitant]
     Route: 065

REACTIONS (1)
  - Diarrhoea [Unknown]
